FAERS Safety Report 9839894 (Version 5)
Quarter: 2014Q2

REPORT INFORMATION
  Report Type: Spontaneous
  Country: CA (occurrence: CA)
  Receive Date: 20140124
  Receipt Date: 20140620
  Transmission Date: 20141212
  Serious: Yes (Other)
  Sender: FDA-Public Use
  Company Number: CA-AMGEN-CANSP2014003704

PATIENT
  Age: 85 Year
  Sex: Female
  Weight: 67.2 kg

DRUGS (3)
  1. PROLIA [Suspect]
     Indication: OSTEOPOROSIS POSTMENOPAUSAL
     Dosage: 60 MG, Q6MO
     Route: 058
     Dates: start: 20100605
  2. SEEBRI [Concomitant]
  3. SOLAN                              /00148702/ [Concomitant]

REACTIONS (6)
  - Walking aid user [Unknown]
  - Contusion [Not Recovered/Not Resolved]
  - Skin discolouration [Not Recovered/Not Resolved]
  - Arthralgia [Not Recovered/Not Resolved]
  - Pain in extremity [Not Recovered/Not Resolved]
  - Osteopenia [Unknown]
